FAERS Safety Report 14079913 (Version 1)
Quarter: 2017Q4

REPORT INFORMATION
  Report Type: Spontaneous
  Country: SE (occurrence: SE)
  Receive Date: 20171012
  Receipt Date: 20171012
  Transmission Date: 20180321
  Serious: Yes (Other)
  Sender: FDA-Public Use
  Company Number: SE-TEVA-813961ISR

PATIENT
  Age: 21 Year
  Sex: Female

DRUGS (5)
  1. SELEXID (PEVMECILLINAM HYDROCHLORIDE) [Concomitant]
     Active Substance: AMDINOCILLIN PIVOXIL HYDROCHLORIDE
  2. KAVEPENIN [Concomitant]
     Active Substance: PHENOXYMETHYLPENICILLIN CALCIUM
  3. MABTHERA [Concomitant]
     Active Substance: RITUXIMAB
  4. CIPROFLOXACIN. [Suspect]
     Active Substance: CIPROFLOXACIN
  5. FURADANTIN [Concomitant]
     Active Substance: NITROFURANTOIN

REACTIONS (1)
  - Behcet^s syndrome [Not Recovered/Not Resolved]
